FAERS Safety Report 16390625 (Version 14)
Quarter: 2020Q3

REPORT INFORMATION
  Report Type: Report from Study
  Country: US (occurrence: US)
  Receive Date: 20190604
  Receipt Date: 20200813
  Transmission Date: 20201102
  Serious: Yes (Hospitalization)
  Sender: FDA-Public Use
  Company Number: US-ACTELION-A-NJ2019-187878

PATIENT
  Age: 73 Year
  Sex: Female
  Weight: 72.56 kg

DRUGS (7)
  1. OPSUMIT [Suspect]
     Active Substance: MACITENTAN
     Indication: PULMONARY ARTERIAL HYPERTENSION
     Dosage: 10 MG, QD
     Route: 048
  2. ADEMPAS [Suspect]
     Active Substance: RIOCIGUAT
     Indication: PRODUCT USED FOR UNKNOWN INDICATION
     Dosage: 1 MG, TID
     Route: 048
  3. UPTRAVI [Suspect]
     Active Substance: SELEXIPAG
     Dosage: 200 MCG, QD
     Route: 048
  4. UPTRAVI [Suspect]
     Active Substance: SELEXIPAG
     Indication: PULMONARY ARTERIAL HYPERTENSION
     Dosage: 200 MCG, BID
     Route: 048
     Dates: start: 20190307
  5. UPTRAVI [Suspect]
     Active Substance: SELEXIPAG
     Dosage: 400 MCG, BID
     Route: 048
  6. OPSUMIT [Suspect]
     Active Substance: MACITENTAN
     Dosage: 10 MG, QD
     Route: 048
  7. OPSUMIT [Suspect]
     Active Substance: MACITENTAN
     Dosage: 10 MG, QD
     Route: 048

REACTIONS (29)
  - Dyspnoea [Unknown]
  - Biopsy liver [Unknown]
  - Condition aggravated [Recovering/Resolving]
  - Chest discomfort [Unknown]
  - Gastrooesophageal reflux disease [Unknown]
  - Decreased appetite [Unknown]
  - Hypotension [Unknown]
  - Eczema [Not Recovered/Not Resolved]
  - Dizziness [Unknown]
  - Dyspepsia [Not Recovered/Not Resolved]
  - Middle insomnia [Unknown]
  - Pleural effusion [Unknown]
  - Product dose omission issue [Unknown]
  - Vision blurred [Unknown]
  - Nausea [Unknown]
  - Hot flush [Not Recovered/Not Resolved]
  - Abdominal pain lower [Unknown]
  - Pain in extremity [Recovering/Resolving]
  - Chest pain [Unknown]
  - Night sweats [Unknown]
  - Cough [Unknown]
  - Pneumonia [Unknown]
  - Peripheral swelling [Unknown]
  - Headache [Unknown]
  - Sinus disorder [Unknown]
  - Bronchitis [Unknown]
  - Malaise [Unknown]
  - Diabetes mellitus [Unknown]
  - Fatigue [Unknown]

NARRATIVE: CASE EVENT DATE: 20190308
